FAERS Safety Report 19082832 (Version 1)
Quarter: 2021Q2

REPORT INFORMATION
  Report Type: Spontaneous
  Country: US (occurrence: US)
  Receive Date: 20210401
  Receipt Date: 20210401
  Transmission Date: 20210717
  Serious: Yes (Other)
  Sender: FDA-Public Use
  Company Number: None

PATIENT
  Age: 49 Year
  Sex: Female
  Weight: 58.5 kg

DRUGS (4)
  1. LAMICTAL [Concomitant]
     Active Substance: LAMOTRIGINE
  2. GREEN MENG DA KRATOM [Suspect]
     Active Substance: HERBALS\MITRAGYNINE
     Indication: ANXIETY
     Dosage: ?          QUANTITY:5 GRAMS;?
     Route: 048
  3. GREEN MENG DA KRATOM [Suspect]
     Active Substance: HERBALS\MITRAGYNINE
     Indication: ARTHRALGIA
     Dosage: ?          QUANTITY:5 GRAMS;?
     Route: 048
  4. SERTRALINE [Concomitant]
     Active Substance: SERTRALINE HYDROCHLORIDE

REACTIONS (8)
  - Mental disorder [None]
  - Memory impairment [None]
  - Withdrawal syndrome [None]
  - Cognitive disorder [None]
  - Reading disorder [None]
  - Dependence [None]
  - Confusional state [None]
  - Impaired work ability [None]

NARRATIVE: CASE EVENT DATE: 20210401
